FAERS Safety Report 13705810 (Version 2)
Quarter: 2017Q3

REPORT INFORMATION
  Report Type: Report from Study
  Country: CZ (occurrence: CZ)
  Receive Date: 20170630
  Receipt Date: 20170720
  Transmission Date: 20171127
  Serious: Yes (Other)
  Sender: FDA-Public Use
  Company Number: CZ-PFIZER INC-2017282891

PATIENT

DRUGS (3)
  1. DOXORUBICIN HCL [Suspect]
     Active Substance: DOXORUBICIN HYDROCHLORIDE
     Indication: PERITONEAL NEOPLASM
     Dosage: UNK
     Route: 042
  2. OXALIPLATIN. [Suspect]
     Active Substance: OXALIPLATIN
     Indication: PERITONEAL NEOPLASM
     Dosage: UNK
     Route: 042
  3. CISPLATIN. [Suspect]
     Active Substance: CISPLATIN
     Indication: PERITONEAL NEOPLASM
     Dosage: UNK
     Route: 042

REACTIONS (10)
  - Cardiovascular disorder [Unknown]
  - Respiratory failure [Unknown]
  - Inflammation [Unknown]
  - Toxicity to various agents [Unknown]
  - Pneumonia [Unknown]
  - Thrombocytopenia [Unknown]
  - Malnutrition [Unknown]
  - Fatigue [Unknown]
  - Nausea [Unknown]
  - Abdominal pain [Unknown]

NARRATIVE: CASE EVENT DATE: 2016
